FAERS Safety Report 7401791-8 (Version None)
Quarter: 2011Q2

REPORT INFORMATION
  Report Type: 
  Country: None (occurrence: None)
  Receive Date: 20110408
  Receipt Date: 20110405
  Transmission Date: 20111010
  Serious: No
  Sender: FDA-Public Use
  Company Number: US-PFIZER INC-2011049820

PATIENT
  Sex: Female
  Weight: 108.84 kg

DRUGS (5)
  1. DETROL LA [Suspect]
     Indication: URINARY INCONTINENCE
     Dosage: 400 MG, 1X/DAY
  2. DETROL LA [Suspect]
     Indication: RENAL DISORDER
  3. LIPITOR [Concomitant]
     Indication: BLOOD CHOLESTEROL ABNORMAL
     Dosage: 20 MG, 1X/DAY
  4. DETROL LA [Suspect]
     Indication: BLADDER DISORDER
  5. NORVASC [Concomitant]
     Indication: CARDIAC DISORDER
     Dosage: 5 MG, 1X/DAY

REACTIONS (3)
  - URINARY INCONTINENCE [None]
  - INCORRECT DOSE ADMINISTERED [None]
  - POLLAKIURIA [None]
